FAERS Safety Report 21607702 (Version 3)
Quarter: 2023Q1

REPORT INFORMATION
  Report Type: Report from Study
  Country: US (occurrence: US)
  Receive Date: 20221117
  Receipt Date: 20230118
  Transmission Date: 20230418
  Serious: No
  Sender: FDA-Public Use
  Company Number: US-002147023-NVSC2022US254783

PATIENT
  Age: 37 Year
  Sex: Female

DRUGS (1)
  1. ENTRESTO [Suspect]
     Active Substance: SACUBITRIL\VALSARTAN
     Indication: Product used for unknown indication
     Dosage: 1 DOSAGE FORM, (CONTAINS 24.3 MG SACUBITRIL AND 25.7 MG VALSARTAN), BID
     Route: 048

REACTIONS (3)
  - Palpitations [Unknown]
  - Fatigue [Unknown]
  - Blood pressure systolic decreased [Unknown]
